FAERS Safety Report 22081447 (Version 2)
Quarter: 2023Q1

REPORT INFORMATION
  Report Type: Report from Study
  Country: US (occurrence: US)
  Receive Date: 20230310
  Receipt Date: 20230313
  Transmission Date: 20230418
  Serious: Yes (Hospitalization, Other)
  Sender: FDA-Public Use
  Company Number: US-ABBVIE-4333928

PATIENT
  Age: 54 Year
  Sex: Male

DRUGS (1)
  1. SKYRIZI [Suspect]
     Active Substance: RISANKIZUMAB-RZAA
     Indication: Product used for unknown indication
     Route: 058
     Dates: start: 20230105

REACTIONS (3)
  - Gastrointestinal anastomotic leak [Not Recovered/Not Resolved]
  - Adhesion [Not Recovered/Not Resolved]
  - Scar excision [Not Recovered/Not Resolved]

NARRATIVE: CASE EVENT DATE: 20230213
